FAERS Safety Report 13906775 (Version 2)
Quarter: 2017Q3

REPORT INFORMATION
  Report Type: Spontaneous
  Country: US (occurrence: US)
  Receive Date: 20170825
  Receipt Date: 20170906
  Transmission Date: 20171127
  Serious: Yes (Other)
  Sender: FDA-Public Use
  Company Number: US-AMGEN-USASP2017126349

PATIENT
  Age: 71 Year
  Sex: Female

DRUGS (1)
  1. PROLIA [Suspect]
     Active Substance: DENOSUMAB
     Indication: OSTEOPOROSIS POSTMENOPAUSAL
     Dosage: 60 MG, UNK
     Route: 065
     Dates: start: 201702

REACTIONS (9)
  - Lower limb fracture [Recovering/Resolving]
  - Dysuria [Not Recovered/Not Resolved]
  - Peripheral swelling [Unknown]
  - Cataract [Unknown]
  - Impaired healing [Unknown]
  - Micturition urgency [Not Recovered/Not Resolved]
  - Pollakiuria [Not Recovered/Not Resolved]
  - Mass [Unknown]
  - Insomnia [Unknown]

NARRATIVE: CASE EVENT DATE: 201703
